FAERS Safety Report 9163256 (Version 2)
Quarter: 2013Q2

REPORT INFORMATION
  Report Type: Spontaneous
  Country: US (occurrence: US)
  Receive Date: 20130314
  Receipt Date: 20130618
  Transmission Date: 20140414
  Serious: Yes (Other)
  Sender: FDA-Public Use
  Company Number: US-JNJFOC-20130304788

PATIENT
  Age: 74 Year
  Sex: Female
  Weight: 56.25 kg

DRUGS (5)
  1. BENADRYL ALLERGY ULTRATAB [Suspect]
     Indication: MULTIPLE ALLERGIES
     Route: 048
     Dates: start: 20100401, end: 20100401
  2. LISINOPRIL [Concomitant]
     Indication: HYPERTENSION
     Dosage: SINCE 6 MONTHS
     Route: 065
  3. TIMOLOL [Concomitant]
     Indication: GLAUCOMA
     Dosage: 1 DROP IN L EYE IN ONE EYE
     Route: 065
  4. LUMIGAN [Concomitant]
     Indication: GLAUCOMA
     Dosage: 1 DROP BOTH EYES SINCE 2 YEARS
     Route: 065
  5. LEVOTHYROXINE [Concomitant]
     Indication: THYROID OPERATION
     Route: 065

REACTIONS (2)
  - Pharyngeal oedema [Recovered/Resolved]
  - Sensory disturbance [Recovered/Resolved]
